FAERS Safety Report 23581807 (Version 2)
Quarter: 2024Q1

REPORT INFORMATION
  Report Type: Spontaneous
  Country: US (occurrence: US)
  Receive Date: 20240229
  Receipt Date: 20240312
  Transmission Date: 20240410
  Serious: Yes (Other)
  Sender: FDA-Public Use
  Company Number: US-PRESTIGE-202402-US-000387

PATIENT
  Age: 51 Year
  Sex: Female

DRUGS (2)
  1. BC HEADACHE POWDER [Suspect]
     Active Substance: ASPIRIN\CAFFEINE
     Indication: Headache
     Dosage: 2 TO 3 POWDERS A DAY
     Route: 048
  2. BC HEADACHE POWDER [Suspect]
     Active Substance: ASPIRIN\CAFFEINE
     Route: 048

REACTIONS (3)
  - Gallbladder disorder [Not Recovered/Not Resolved]
  - Irritable bowel syndrome [Not Recovered/Not Resolved]
  - Visual impairment [Not Recovered/Not Resolved]
